FAERS Safety Report 7577444-2 (Version None)
Quarter: 2011Q2

REPORT INFORMATION
  Report Type: 
  Country: None (occurrence: None)
  Receive Date: 20110628
  Receipt Date: 20110131
  Transmission Date: 20111010
  Serious: Yes (Hospitalization, Other)
  Sender: FDA-Public Use
  Company Number: US-BAYER-201034103NA

PATIENT
  Age: 18 Year
  Sex: Female
  Weight: 84 kg

DRUGS (5)
  1. OGESTREL 0.5/50-21 [Suspect]
     Indication: ORAL CONTRACEPTION
     Dosage: UNK
     Dates: start: 20070222, end: 20070501
  2. NAPROXEN [Concomitant]
  3. YAZ [Suspect]
     Indication: MENSTRUATION IRREGULAR
     Dosage: UNK UNK, UNK
     Dates: start: 20050101, end: 20070201
  4. IBUPROF [Concomitant]
     Dosage: UNK UNK, PRN
  5. YASMIN [Suspect]
     Indication: MENSTRUATION IRREGULAR
     Dosage: UNK UNK, UNK
     Dates: start: 20050101, end: 20070201

REACTIONS (3)
  - CHOLECYSTECTOMY [None]
  - PAIN [None]
  - CHOLELITHIASIS [None]
